FAERS Safety Report 4908799-2 (Version None)
Quarter: 2006Q1

REPORT INFORMATION
  Report Type: 
  Country: None (occurrence: None)
  Receive Date: 20060210
  Receipt Date: 20051122
  Transmission Date: 20060701
  Serious: No
  Sender: FDA-Public Use
  Company Number: US-GLAXOSMITHKLINE-A0583512A

PATIENT
  Age: 39 Year
  Sex: Male

DRUGS (4)
  1. PAXIL CR [Suspect]
     Indication: DRUG USE FOR UNKNOWN INDICATION
     Dosage: 37.5MG PER DAY
     Route: 048
     Dates: start: 20051104
  2. TEGRETOL [Concomitant]
  3. LITHIUM [Concomitant]
  4. BENICAR [Concomitant]

REACTIONS (1)
  - DEPRESSION [None]
